FAERS Safety Report 12072360 (Version 1)
Quarter: 2016Q1

REPORT INFORMATION
  Report Type: Spontaneous
  Country: US (occurrence: US)
  Receive Date: 20160212
  Receipt Date: 20160212
  Transmission Date: 20160526
  Serious: Yes (Other)
  Sender: FDA-Public Use
  Company Number: US-DRREDDYS-USA/USA/16/0070316

PATIENT
  Age: 38 Year
  Sex: Female

DRUGS (4)
  1. PRAVASTATIN [Suspect]
     Active Substance: PRAVASTATIN\PRAVASTATIN SODIUM
     Indication: PLACENTAL DISORDER
     Route: 065
  2. IMMUNE GLOBULIN [Concomitant]
     Active Substance: HUMAN IMMUNOGLOBULIN G
     Indication: PLACENTAL DISORDER
     Route: 042
  3. ASPIRIN. [Concomitant]
     Active Substance: ASPIRIN
     Indication: PLACENTAL DISORDER
     Route: 065
  4. HEPARIN [Concomitant]
     Active Substance: HEPARIN SODIUM
     Indication: PLACENTAL DISORDER
     Route: 058

REACTIONS (6)
  - Premature rupture of membranes [Unknown]
  - Normal newborn [Unknown]
  - Off label use [Unknown]
  - Exposure during pregnancy [Unknown]
  - Premature labour [Unknown]
  - Therapeutic response unexpected [Unknown]
